FAERS Safety Report 10506942 (Version 3)
Quarter: 2014Q4

REPORT INFORMATION
  Report Type: Spontaneous
  Country: BR (occurrence: BR)
  Receive Date: 20141009
  Receipt Date: 20141112
  Transmission Date: 20150528
  Serious: Yes (Other)
  Sender: FDA-Public Use
  Company Number: BR-ELI_LILLY_AND_COMPANY-BR201409010083

PATIENT
  Age: 80 Year
  Sex: Female
  Weight: 69 kg

DRUGS (2)
  1. HUMALOG [Suspect]
     Active Substance: INSULIN LISPRO
     Dosage: 18 DF, QD AT LUNCH TIME
     Route: 058
     Dates: start: 2002
  2. HUMALOG [Suspect]
     Active Substance: INSULIN LISPRO
     Indication: PRODUCT USED FOR UNKNOWN INDICATION
     Dosage: 16 DF, EACH MORNING
     Route: 058
     Dates: start: 2002

REACTIONS (4)
  - Bladder neoplasm [Unknown]
  - Blood glucose increased [Recovered/Resolved]
  - Glaucoma [Unknown]
  - Haematuria [Recovered/Resolved]

NARRATIVE: CASE EVENT DATE: 20141001
